FAERS Safety Report 17434855 (Version 4)
Quarter: 2020Q2

REPORT INFORMATION
  Report Type: Report from Study
  Country: CA (occurrence: CA)
  Receive Date: 20200219
  Receipt Date: 20200622
  Transmission Date: 20200713
  Serious: Yes (Hospitalization, Other)
  Sender: FDA-Public Use
  Company Number: NVSC2020CA042837

PATIENT
  Age: 50 Year
  Sex: Male

DRUGS (2)
  1. ERELZI [Suspect]
     Active Substance: ETANERCEPT-SZZS
     Dosage: UNK
     Route: 058
     Dates: start: 20200202
  2. ERELZI [Suspect]
     Active Substance: ETANERCEPT-SZZS
     Indication: ANKYLOSING SPONDYLITIS
     Dosage: 50 MG, QW
     Route: 058
     Dates: start: 20181107

REACTIONS (11)
  - Pneumonia [Unknown]
  - Ligament sprain [Unknown]
  - Pancreatitis [Unknown]
  - Thrombosis [Unknown]
  - Eye pain [Unknown]
  - Feeding disorder [Unknown]
  - Loss of consciousness [Unknown]
  - Pyrexia [Unknown]
  - Pancreatic cyst [Unknown]
  - Vision blurred [Unknown]
  - Headache [Unknown]

NARRATIVE: CASE EVENT DATE: 2020
